FAERS Safety Report 15346202 (Version 1)
Quarter: 2018Q3

REPORT INFORMATION
  Report Type: Spontaneous
  Country: PT (occurrence: PT)
  Receive Date: 20180904
  Receipt Date: 20180904
  Transmission Date: 20181010
  Serious: Yes (Other)
  Sender: FDA-Public Use
  Company Number: PT-ABBVIE-18K-130-2471590-00

PATIENT
  Age: 58 Year
  Sex: Female

DRUGS (1)
  1. ADALIMUMAB [Suspect]
     Active Substance: ADALIMUMAB
     Indication: ANKYLOSING SPONDYLITIS
     Route: 058
     Dates: start: 20180204, end: 2018

REACTIONS (14)
  - Administration site reaction [Recovering/Resolving]
  - Eye swelling [Recovering/Resolving]
  - Somnolence [Recovered/Resolved]
  - Tinnitus [Recovering/Resolving]
  - Eczema [Recovering/Resolving]
  - Visual impairment [Recovering/Resolving]
  - Fatigue [Recovered/Resolved]
  - Dyspepsia [Recovering/Resolving]
  - Insomnia [Recovered/Resolved]
  - Diplopia [Recovering/Resolving]
  - Headache [Recovering/Resolving]
  - Paraesthesia [Recovering/Resolving]
  - Onychomycosis [Recovering/Resolving]
  - Eczema eyelids [Recovering/Resolving]

NARRATIVE: CASE EVENT DATE: 20180204
